FAERS Safety Report 5016576-X (Version None)
Quarter: 2006Q2

REPORT INFORMATION
  Report Type: 
  Country: None (occurrence: None)
  Receive Date: 20060602
  Receipt Date: 20060523
  Transmission Date: 20061013
  Serious: Yes (Other)
  Sender: FDA-Public Use
  Company Number: PHNU2006DE02076

PATIENT
  Sex: Female
  Weight: 85 kg

DRUGS (5)
  1. VOLTAREN [Suspect]
     Indication: SPONDYLOLISTHESIS
     Route: 048
  2. VOLTAREN [Suspect]
     Indication: SPONDYLOLISTHESIS
     Dosage: UNK, UNK
     Route: 048
     Dates: start: 19840101
  3. CONCOR [Concomitant]
     Indication: HYPERTENSION
     Dates: start: 19860101
  4. EFEROX [Concomitant]
     Indication: HYPOTHYROIDISM
     Dates: start: 19860101
  5. TROMMCARDIN [Concomitant]

REACTIONS (2)
  - TENDON DISORDER [None]
  - TENDON RUPTURE [None]
